FAERS Safety Report 15713742 (Version 2)
Quarter: 2018Q4

REPORT INFORMATION
  Report Type: Spontaneous
  Country: NP (occurrence: NP)
  Receive Date: 20181212
  Receipt Date: 20181218
  Transmission Date: 20190205
  Serious: Yes (Death, Life-Threatening, Hospitalization, Other)
  Sender: FDA-Public Use
  Company Number: NP-PFIZER INC-2018506917

PATIENT
  Age: 56 Year
  Sex: Male

DRUGS (3)
  1. METHYLPREDNISOLONE. [Suspect]
     Active Substance: METHYLPREDNISOLONE
     Indication: CHRONIC OBSTRUCTIVE PULMONARY DISEASE
     Dosage: 40 MG, 3X/DAY
     Dates: start: 201611, end: 201611
  2. PREDNISOLONE. [Suspect]
     Active Substance: PREDNISOLONE
     Dosage: 5 MG, UNK
     Dates: start: 2016
  3. PREDNISOLONE. [Suspect]
     Active Substance: PREDNISOLONE
     Indication: CHRONIC OBSTRUCTIVE PULMONARY DISEASE
     Dosage: UNK (60MG G/L)
     Route: 048
     Dates: end: 2016

REACTIONS (13)
  - Enterococcal infection [Not Recovered/Not Resolved]
  - Pleural effusion [Unknown]
  - Chronic obstructive pulmonary disease [Not Recovered/Not Resolved]
  - Acute respiratory distress syndrome [Not Recovered/Not Resolved]
  - Arthralgia [Unknown]
  - Pulmonary alveolar haemorrhage [Unknown]
  - Cardiomegaly [Unknown]
  - Hilar lymphadenopathy [Unknown]
  - Strongyloidiasis [Fatal]
  - Hypotension [Unknown]
  - Strongyloidiasis [Fatal]
  - Haemoptysis [Unknown]
  - Gastritis [Unknown]

NARRATIVE: CASE EVENT DATE: 201611
